FAERS Safety Report 9825290 (Version 1)
Quarter: 2014Q1

REPORT INFORMATION
  Report Type: Spontaneous
  Country: BR (occurrence: BR)
  Receive Date: 20140117
  Receipt Date: 20140117
  Transmission Date: 20141002
  Serious: Yes (Hospitalization)
  Sender: FDA-Public Use
  Company Number: BR-ASTRAZENECA-2014SE03004

PATIENT
  Age: 812 Month
  Sex: Female

DRUGS (5)
  1. ATENOLOL [Suspect]
     Indication: HYPERTENSION
     Route: 048
  2. ATENOLOL [Suspect]
     Indication: ARRHYTHMIA
     Route: 048
  3. SIMVASTATIN [Concomitant]
     Indication: BLOOD CHOLESTEROL INCREASED
     Dosage: DAILY
     Route: 048
  4. BRILINTA [Concomitant]
     Dates: end: 201311
  5. ASPIRINA [Concomitant]
     Dates: start: 201311

REACTIONS (2)
  - Coronary artery occlusion [Recovered/Resolved]
  - Depression [Recovering/Resolving]
